FAERS Safety Report 8582641-3 (Version None)
Quarter: 2012Q3

REPORT INFORMATION
  Report Type: 
  Country: None (occurrence: None)
  Receive Date: 20120809
  Receipt Date: 20120801
  Transmission Date: 20120928
  Serious: Yes (Other)
  Sender: FDA-Public Use
  Company Number: US-CELGENEUS-163-21880-12032588

PATIENT
  Sex: Male
  Weight: 83.536 kg

DRUGS (17)
  1. DEXAMETHASONE [Concomitant]
     Indication: MULTIPLE MYELOMA
     Dosage: 4 MILLIGRAM
     Route: 048
  2. GLYBURIDE [Concomitant]
     Dosage: 1
     Route: 048
  3. NIFEDIPINE [Concomitant]
     Dosage: 1
     Route: 048
  4. LOVASTATIN [Concomitant]
     Dosage: 1
     Route: 048
  5. LOVASTATIN [Concomitant]
     Dosage: 1 TABLET
     Route: 048
  6. CLONIDINE [Concomitant]
     Dosage: 2
     Route: 048
  7. DEXAMETHASONE [Concomitant]
     Dosage: 16 MILLIGRAM
     Route: 048
  8. FUROSEMIDE [Concomitant]
     Dosage: 40 MILLIGRAM
     Route: 048
  9. VITAMIN D [Concomitant]
     Dosage: 2000UNIT
     Route: 048
  10. HYDROCHLOROTHIAZIDE [Concomitant]
     Dosage: 25 MILLIGRAM
     Route: 065
  11. DEXAMETHASONE [Concomitant]
     Dosage: 12 MILLIGRAM
  12. REVLIMID [Suspect]
     Indication: MULTIPLE MYELOMA
     Dosage: 5 MILLIGRAM
     Route: 048
     Dates: start: 20120101
  13. FUROSEMIDE [Concomitant]
     Dosage: 1 TABLET
     Route: 048
  14. ASPIRIN [Concomitant]
     Dosage: 325 MILLIGRAM
     Route: 048
  15. TERAZOSIN HYDROCHLORIDE [Concomitant]
     Indication: BLOOD PRESSURE
     Dosage: 1
     Route: 048
  16. ALBUTEROL [Concomitant]
     Indication: WHEEZING
     Dosage: 2 PUFFS
     Route: 055
  17. VICODIN [Concomitant]
     Indication: PAIN
     Dosage: 5-500 MG
     Route: 048
     Dates: start: 20120301

REACTIONS (2)
  - ARTHRITIS [None]
  - BURSITIS [None]
